FAERS Safety Report 8244675-8 (Version None)
Quarter: 2012Q1

REPORT INFORMATION
  Report Type: 
  Country: None (occurrence: None)
  Receive Date: 20120329
  Receipt Date: 20120113
  Transmission Date: 20120608
  Serious: No
  Sender: FDA-Public Use
  Company Number: US-MYLANLABS-2012S1001114

PATIENT
  Age: 56 Year
  Sex: Male

DRUGS (6)
  1. GABAPENTIN [Concomitant]
  2. SIMVASTATIN [Concomitant]
  3. LISINOPRIL [Concomitant]
  4. PERCOCET [Concomitant]
  5. FENTANYL-100 [Suspect]
     Indication: PAIN
     Dosage: CHANGE Q48HR
     Route: 062
     Dates: start: 20050101
  6. VITAMIN TAB [Concomitant]

REACTIONS (3)
  - DRUG EFFECT DECREASED [None]
  - PAIN [None]
  - DRUG WITHDRAWAL SYNDROME [None]
